FAERS Safety Report 23775422 (Version 1)
Quarter: 2024Q2

REPORT INFORMATION
  Report Type: Spontaneous
  Country: US (occurrence: US)
  Receive Date: 20240423
  Receipt Date: 20240423
  Transmission Date: 20240716
  Serious: Yes (Other)
  Sender: FDA-Public Use
  Company Number: US-PFIZER INC-PV202400052166

PATIENT

DRUGS (13)
  1. CIPROFLOXACIN [Suspect]
     Active Substance: CIPROFLOXACIN
     Dosage: UNK
  2. METHOTREXATE SODIUM [Suspect]
     Active Substance: METHOTREXATE SODIUM
     Dosage: UNK
  3. FLAGYL [Suspect]
     Active Substance: METRONIDAZOLE\METRONIDAZOLE HYDROCHLORIDE
     Dosage: UNK
  4. XELJANZ [Suspect]
     Active Substance: TOFACITINIB CITRATE
     Dosage: UNK
  5. ASACOL [Suspect]
     Active Substance: MESALAMINE
     Dosage: UNK
  6. CIMZIA [Suspect]
     Active Substance: CERTOLIZUMAB PEGOL
     Dosage: UNK
  7. ENTYVIO [Suspect]
     Active Substance: VEDOLIZUMAB
     Dosage: UNK
  8. ENTOCORT [Suspect]
     Active Substance: BUDESONIDE
     Dosage: UNK
  9. HUMIRA [Suspect]
     Active Substance: ADALIMUMAB
     Dosage: UNK
  10. PENTASA [Suspect]
     Active Substance: MESALAMINE
     Dosage: UNK
  11. PREDNISONE [Suspect]
     Active Substance: PREDNISONE
     Dosage: UNK
  12. REMICADE [Suspect]
     Active Substance: INFLIXIMAB
     Dosage: UNK
  13. STELARA [Suspect]
     Active Substance: USTEKINUMAB
     Dosage: UNK

REACTIONS (11)
  - Anal abscess [Unknown]
  - Haemorrhoids [Unknown]
  - Fistula [Unknown]
  - Pyrexia [Unknown]
  - Night sweats [Unknown]
  - Diarrhoea [Unknown]
  - Fatigue [Unknown]
  - Asthenia [Unknown]
  - Abdominal pain upper [Unknown]
  - Proctalgia [Unknown]
  - Nausea [Unknown]
